FAERS Safety Report 7944038-6 (Version None)
Quarter: 2011Q4

REPORT INFORMATION
  Report Type: 
  Country: None (occurrence: None)
  Receive Date: 20111128
  Receipt Date: 20111117
  Transmission Date: 20120403
  Serious: Yes (Death, Life-Threatening, Hospitalization, Other)
  Sender: FDA-Public Use
  Company Number: US-CELGENEUS-163-21880-11083114

PATIENT
  Sex: Male

DRUGS (7)
  1. PROTONIX [Concomitant]
     Dosage: 40 MILLIGRAM
     Route: 065
     Dates: start: 20101201
  2. ACYCLOVIR [Concomitant]
     Indication: HERPES ZOSTER
     Dosage: 400 MILLIGRAM
     Route: 065
     Dates: start: 20101201
  3. REVLIMID [Suspect]
     Indication: LYMPHOMA
     Dosage: 15 MILLIGRAM
     Route: 048
     Dates: start: 20110201, end: 20110503
  4. DIFLUCAN [Concomitant]
     Indication: FUNGAL INFECTION
     Dosage: 200 MILLIGRAM
     Route: 048
     Dates: start: 20101201
  5. MS CONTIN [Concomitant]
     Indication: PAIN
     Dosage: 15 MILLIGRAM
     Route: 065
     Dates: start: 20101201
  6. BACTRIM DS [Concomitant]
     Dosage: 1 TABLET
     Route: 065
     Dates: start: 20101201
  7. NEURONTIN [Concomitant]
     Dosage: 300 MILLIGRAM
     Route: 065
     Dates: start: 20101201

REACTIONS (4)
  - DEEP VEIN THROMBOSIS [None]
  - VOMITING [None]
  - NON-HODGKIN'S LYMPHOMA [None]
  - DEHYDRATION [None]
